FAERS Safety Report 19299360 (Version 1)
Quarter: 2021Q2

REPORT INFORMATION
  Report Type: Spontaneous
  Country: US (occurrence: US)
  Receive Date: 20210524
  Receipt Date: 20210524
  Transmission Date: 20210717
  Serious: Yes (Hospitalization)
  Sender: FDA-Public Use
  Company Number: None

PATIENT
  Age: 57 Year
  Sex: Male

DRUGS (3)
  1. STELARA [Suspect]
     Active Substance: USTEKINUMAB
     Indication: CROHN^S DISEASE
     Dosage: ?          OTHER FREQUENCY:EVERY 8 WEEKS;?
     Route: 058
     Dates: start: 20201009
  2. PENICILLIN VK [Suspect]
     Active Substance: PENICILLIN V POTASSIUM
  3. PREDNISONE. [Suspect]
     Active Substance: PREDNISONE

REACTIONS (4)
  - Diarrhoea [None]
  - Weight fluctuation [None]
  - Abdominal pain [None]
  - Crohn^s disease [None]

NARRATIVE: CASE EVENT DATE: 20210522
